FAERS Safety Report 20505242 (Version 1)
Quarter: 2022Q1

REPORT INFORMATION
  Report Type: Spontaneous
  Country: US (occurrence: US)
  Receive Date: 20220223
  Receipt Date: 20220223
  Transmission Date: 20220424
  Serious: Yes (Other)
  Sender: FDA-Public Use
  Company Number: US-ABBVIE-22K-163-4287509-00

PATIENT
  Sex: Female
  Weight: 87.168 kg

DRUGS (11)
  1. SYNTHROID [Suspect]
     Active Substance: LEVOTHYROXINE SODIUM
     Indication: Basedow^s disease
     Route: 048
  2. SYNTHROID [Suspect]
     Active Substance: LEVOTHYROXINE SODIUM
     Route: 048
  3. SYNTHROID [Suspect]
     Active Substance: LEVOTHYROXINE SODIUM
     Route: 048
  4. SYNTHROID [Suspect]
     Active Substance: LEVOTHYROXINE SODIUM
     Route: 048
  5. SYNTHROID [Suspect]
     Active Substance: LEVOTHYROXINE SODIUM
     Route: 048
     Dates: start: 202106
  6. SYNTHROID [Suspect]
     Active Substance: LEVOTHYROXINE SODIUM
     Route: 048
  7. MODERNA COVID-19 VACCINE [Concomitant]
     Active Substance: ELASOMERAN
     Indication: COVID-19 immunisation
     Dosage: MODERNA
     Route: 030
     Dates: start: 20210904, end: 20210904
  8. MODERNA COVID-19 VACCINE [Concomitant]
     Active Substance: ELASOMERAN
     Dosage: MODERNA
     Route: 030
     Dates: start: 20211002, end: 20211002
  9. LOSARTAN [Concomitant]
     Active Substance: LOSARTAN
     Indication: Blood pressure measurement
  10. CLONIDINE [Concomitant]
     Active Substance: CLONIDINE
     Indication: Anxiety
  11. ZINC [Concomitant]
     Active Substance: ZINC
     Indication: Product used for unknown indication

REACTIONS (40)
  - Retinal vascular occlusion [Recovered/Resolved]
  - Parathyroid tumour benign [Recovered/Resolved]
  - Hypertension [Recovering/Resolving]
  - Hyperhidrosis [Recovering/Resolving]
  - Psychomotor hyperactivity [Unknown]
  - Insomnia [Recovering/Resolving]
  - Irritability [Recovered/Resolved]
  - Blood thyroid stimulating hormone decreased [Recovered/Resolved]
  - Palpitations [Recovering/Resolving]
  - Irritability [Recovering/Resolving]
  - Hypercalcaemia [Unknown]
  - Hyperparathyroidism [Unknown]
  - Fatigue [Recovering/Resolving]
  - Weight decreased [Not Recovered/Not Resolved]
  - Fatigue [Recovering/Resolving]
  - Impaired self-care [Recovering/Resolving]
  - Dysarthria [Recovering/Resolving]
  - Myalgia [Recovering/Resolving]
  - Rotator cuff syndrome [Recovered/Resolved]
  - Muscular weakness [Not Recovered/Not Resolved]
  - Tendon pain [Recovering/Resolving]
  - Thyroxine increased [Recovered/Resolved]
  - Decreased appetite [Not Recovered/Not Resolved]
  - Hypophagia [Recovering/Resolving]
  - Dyspepsia [Unknown]
  - Tooth injury [Not Recovered/Not Resolved]
  - Dental caries [Not Recovered/Not Resolved]
  - Tooth fracture [Not Recovered/Not Resolved]
  - Diarrhoea [Recovering/Resolving]
  - Muscular weakness [Unknown]
  - Alopecia [Not Recovered/Not Resolved]
  - Growth disorder [Unknown]
  - Muscle spasms [Recovering/Resolving]
  - Discomfort [Recovering/Resolving]
  - Pain [Recovering/Resolving]
  - Burning sensation [Recovering/Resolving]
  - Ear infection [Recovered/Resolved]
  - Sinusitis [Recovered/Resolved]
  - Post-traumatic stress disorder [Unknown]
  - Vitamin D decreased [Recovered/Resolved]

NARRATIVE: CASE EVENT DATE: 20190101
